FAERS Safety Report 11193042 (Version 1)
Quarter: 2015Q2

REPORT INFORMATION
  Report Type: Spontaneous
  Country: US (occurrence: None)
  Receive Date: 20150615
  Receipt Date: 20150615
  Transmission Date: 20150821
  Serious: Yes (Other)
  Sender: FDA-Public Use
  Company Number: None

PATIENT
  Age: 14 Year
  Sex: Male
  Weight: 34.8 kg

DRUGS (11)
  1. POTASSIUM CHLORIDE. [Concomitant]
     Active Substance: POTASSIUM CHLORIDE
  2. VORICONAZOLE. [Concomitant]
     Active Substance: VORICONAZOLE
  3. CETIRIZINE [Concomitant]
     Active Substance: CETIRIZINE HYDROCHLORIDE
  4. PANOBINOSTAT [Suspect]
     Active Substance: PANOBINOSTAT
     Indication: LEUKAEMIA RECURRENT
     Dosage: 40 MG M-W-F
     Dates: start: 20150522, end: 20150525
  5. DOCUSATE-SENNA [Concomitant]
  6. LEVOFLOXACIN. [Concomitant]
     Active Substance: LEVOFLOXACIN
  7. GRANISETRON [Concomitant]
     Active Substance: GRANISETRON
  8. BACTRIM [Concomitant]
     Active Substance: SULFAMETHOXAZOLE\TRIMETHOPRIM
  9. DRONABINOL. [Concomitant]
     Active Substance: DRONABINOL
  10. POLYETHYLENE GLYCOL [Concomitant]
     Active Substance: POLYETHYLENE GLYCOLS
  11. CHOLECALCIFEROL [Concomitant]
     Active Substance: CHOLECALCIFEROL

REACTIONS (2)
  - Hypertriglyceridaemia [None]
  - Acute myeloid leukaemia [None]

NARRATIVE: CASE EVENT DATE: 20150527
